FAERS Safety Report 4491553-6 (Version None)
Quarter: 2004Q4

REPORT INFORMATION
  Report Type: 
  Country: None (occurrence: None)
  Receive Date: 20041101
  Receipt Date: 20041022
  Transmission Date: 20050328
  Serious: Yes (Death, Hospitalization)
  Sender: FDA-Public Use
  Company Number: 2004238424CA

PATIENT
  Age: 44 Year
  Sex: Female
  Weight: 74.4 kg

DRUGS (3)
  1. IRINOTECAN (IRINOTECAN) SOLUTION, STERILE [Suspect]
     Indication: CERVIX CANCER METASTATIC
     Dosage: 137 MG, CYCLE 2, EVERY 3 WEEKS, IV
     Route: 042
     Dates: start: 20040810, end: 20040910
  2. EPIRUBICIN [Suspect]
     Indication: CERVIX CANCER METASTATIC
     Dosage: 73 MG, CYCLE 2, EVERY 3 WEEKS, IV
     Route: 042
     Dates: start: 20040810, end: 20040910
  3. CISPLATIN [Suspect]
     Indication: CERVIX CANCER METASTATIC
     Dosage: 91.4 MG, CYCLE 2, EVERY 3 WEEKS, IV
     Route: 042
     Dates: start: 20040810, end: 20040910

REACTIONS (7)
  - ASPIRATION [None]
  - CARDIAC ARREST [None]
  - DEEP VEIN THROMBOSIS [None]
  - HYPOKALAEMIA [None]
  - INTESTINAL OBSTRUCTION [None]
  - MALIGNANT NEOPLASM PROGRESSION [None]
  - PULMONARY EMBOLISM [None]
